FAERS Safety Report 18924472 (Version 1)
Quarter: 2021Q1

REPORT INFORMATION
  Report Type: Spontaneous
  Country: US (occurrence: US)
  Receive Date: 20210222
  Receipt Date: 20210222
  Transmission Date: 20210420
  Serious: No
  Sender: FDA-Public Use
  Company Number: US-TEVA-2019-US-1084584

PATIENT
  Sex: Male

DRUGS (2)
  1. ATOMOXETINE TEVA [Suspect]
     Active Substance: ATOMOXETINE
     Indication: IMPULSE-CONTROL DISORDER
  2. ATOMOXETINE TEVA [Suspect]
     Active Substance: ATOMOXETINE
     Indication: ANXIETY

REACTIONS (7)
  - Aggression [Recovered/Resolved]
  - Product use in unapproved indication [Unknown]
  - Depression [Recovered/Resolved]
  - Feeling abnormal [Recovered/Resolved]
  - Throat irritation [Recovered/Resolved]
  - Crying [Recovered/Resolved]
  - Product substitution issue [Unknown]
